FAERS Safety Report 8194592-7 (Version None)
Quarter: 2012Q1

REPORT INFORMATION
  Report Type: 
  Country: None (occurrence: None)
  Receive Date: 20120308
  Receipt Date: 20110912
  Transmission Date: 20120608
  Serious: No
  Sender: FDA-Public Use
  Company Number: US-GLAXOSMITHKLINE-A0944193A

PATIENT
  Sex: Female

DRUGS (2)
  1. NICOTINE POLACRILEX [Suspect]
     Indication: EX-TOBACCO USER
     Dates: start: 20110909, end: 20110912
  2. NICORETTE [Suspect]
     Indication: EX-TOBACCO USER

REACTIONS (7)
  - NAUSEA [None]
  - INTENTIONAL DRUG MISUSE [None]
  - ORAL DISCOMFORT [None]
  - GINGIVAL BLISTER [None]
  - ORAL PAIN [None]
  - OROPHARYNGEAL BLISTERING [None]
  - MALAISE [None]
